FAERS Safety Report 17325812 (Version 2)
Quarter: 2020Q1

REPORT INFORMATION
  Report Type: Spontaneous
  Country: GB (occurrence: GB)
  Receive Date: 20200127
  Receipt Date: 20200221
  Transmission Date: 20200409
  Serious: Yes (Life-Threatening)
  Sender: FDA-Public Use
  Company Number: GB-PFIZER INC-2020036112

PATIENT
  Age: 20 Year
  Sex: Female
  Weight: 55 kg

DRUGS (5)
  1. RANITIDINE. [Concomitant]
     Active Substance: RANITIDINE
     Dosage: 2 DF, 1X/DAY
     Dates: start: 20190821
  2. PREGABALIN. [Suspect]
     Active Substance: PREGABALIN
     Dosage: 100 MG, 1X/DAY
     Dates: start: 20191218
  3. TRAMADOL. [Concomitant]
     Active Substance: TRAMADOL
     Dosage: NO MORE THAN 200MG PER DAY AS PER CONSULTANT LE...
     Dates: start: 20190916
  4. MIDODRINE HYDROCHLORIDE. [Concomitant]
     Active Substance: MIDODRINE HYDROCHLORIDE
     Dosage: 3 DF, 1X/DAY, AS INSTRUCTED BY CARDIOLOGY L...
     Dates: start: 20190930, end: 20191030
  5. RIGEVIDON [ETHINYLESTRADIOL;LEVONORGESTREL] [Concomitant]
     Dosage: 1 DF, 1X/DAY AS DIRECTED
     Dates: start: 20190819

REACTIONS (1)
  - Anaphylactic reaction [Recovered/Resolved]

NARRATIVE: CASE EVENT DATE: 20191225
